FAERS Safety Report 15618567 (Version 2)
Quarter: 2018Q4

REPORT INFORMATION
  Report Type: Spontaneous
  Country: BR (occurrence: BR)
  Receive Date: 20181114
  Receipt Date: 20181207
  Transmission Date: 20190205
  Serious: Yes (Hospitalization)
  Sender: FDA-Public Use
  Company Number: BR-PFIZER INC-2018421157

PATIENT
  Age: 85 Year
  Sex: Male

DRUGS (6)
  1. CALCORT [Concomitant]
     Active Substance: DEFLAZACORT
     Dosage: UNK
     Dates: start: 201807
  2. RITALINA [Concomitant]
     Active Substance: METHYLPHENIDATE HYDROCHLORIDE
     Dosage: UNK
     Dates: start: 201807
  3. HIDANTAL [Concomitant]
     Active Substance: PHENYTOIN SODIUM
     Dosage: UNK
     Dates: start: 201807
  4. PRISTIQ EXTENDED-RELEASE [Suspect]
     Active Substance: DESVENLAFAXINE SUCCINATE
     Indication: DEPRESSED MOOD
     Dosage: 1 DF, DAILY
     Dates: start: 201807
  5. CARVEDILOL. [Concomitant]
     Active Substance: CARVEDILOL
     Dosage: UNK
     Dates: start: 201807
  6. OMEPRAZOLE. [Concomitant]
     Active Substance: OMEPRAZOLE
     Dosage: UNK
     Dates: start: 201807

REACTIONS (6)
  - Intestinal haemorrhage [Recovered/Resolved]
  - Anaemia [Recovered/Resolved]
  - Haemorrhage [Recovered/Resolved]
  - Product prescribing error [Unknown]
  - Pneumonitis [Recovered/Resolved]
  - Pyrexia [Recovered/Resolved]

NARRATIVE: CASE EVENT DATE: 201807
